FAERS Safety Report 8596065-6 (Version None)
Quarter: 2012Q3

REPORT INFORMATION
  Report Type: 
  Country: None (occurrence: None)
  Receive Date: 20120815
  Receipt Date: 19960228
  Transmission Date: 20120928
  Serious: Yes (Other)
  Sender: FDA-Public Use
  Company Number: US-ROCHE-1101475

PATIENT
  Sex: Male

DRUGS (4)
  1. ACTIVASE [Suspect]
     Indication: ACUTE MYOCARDIAL INFARCTION
  2. MEVACOR [Concomitant]
  3. CARDIZEM CD [Concomitant]
  4. MOTRIN [Concomitant]

REACTIONS (2)
  - PAIN [None]
  - BLOOD PRESSURE DECREASED [None]
